FAERS Safety Report 6955241-6 (Version None)
Quarter: 2010Q3

REPORT INFORMATION
  Report Type: 
  Country: None (occurrence: None)
  Receive Date: 20100830
  Receipt Date: 20100817
  Transmission Date: 20110219
  Serious: No
  Sender: FDA-Public Use
  Company Number: US-ELI_LILLY_AND_COMPANY-US201008005115

PATIENT
  Sex: Female

DRUGS (3)
  1. CYMBALTA [Suspect]
     Dosage: UNK, UNKNOWN
  2. TYLENOL (CAPLET) [Concomitant]
     Indication: PAIN
  3. ADVIL LIQUI-GELS [Concomitant]
     Indication: PAIN

REACTIONS (1)
  - HEPATIC ENZYME INCREASED [None]
